FAERS Safety Report 5209026-1 (Version None)
Quarter: 2007Q1

REPORT INFORMATION
  Report Type: 
  Country: None (occurrence: None)
  Receive Date: 20070116
  Receipt Date: 20070110
  Transmission Date: 20070707
  Serious: Yes (Other)
  Sender: FDA-Public Use
  Company Number: US-MERCK-0612USA00236

PATIENT
  Age: 57 Year
  Sex: Female

DRUGS (3)
  1. ZETIA [Suspect]
     Indication: HYPERCHOLESTEROLAEMIA
     Route: 048
     Dates: start: 20040216
  2. PREVACID [Concomitant]
     Route: 065
  3. CYANOCOBALAMIN [Concomitant]
     Indication: PERNICIOUS ANAEMIA
     Route: 051

REACTIONS (2)
  - GUILLAIN-BARRE SYNDROME [None]
  - VITAMIN B12 DEFICIENCY [None]
